FAERS Safety Report 9815681 (Version 1)
Quarter: 2014Q1

REPORT INFORMATION
  Report Type: Spontaneous
  Country: US (occurrence: US)
  Receive Date: 20140114
  Receipt Date: 20140114
  Transmission Date: 20141002
  Serious: No
  Sender: FDA-Public Use
  Company Number: US-SHIRE-ALL1-2014-00092

PATIENT
  Age: 11 Year
  Sex: Female
  Weight: 45.35 kg

DRUGS (6)
  1. VYVANSE [Suspect]
     Indication: ATTENTION DEFICIT/HYPERACTIVITY DISORDER
     Dosage: 40 MG, 1X/DAY:QD
     Route: 048
     Dates: start: 20121120, end: 201212
  2. VYVANSE [Suspect]
     Dosage: 50 MG, 1X/DAY:QD
     Route: 048
     Dates: start: 201212, end: 201302
  3. VYVANSE [Suspect]
     Dosage: 60 MG, 1X/DAY:QD
     Route: 048
     Dates: start: 201302, end: 20130601
  4. RISPERDAL [Concomitant]
     Indication: ABNORMAL BEHAVIOUR
     Dosage: UNK UNK, 1X/DAY:QD
     Route: 048
     Dates: start: 201301, end: 20130601
  5. PROZAC [Concomitant]
     Indication: PRODUCT USED FOR UNKNOWN INDICATION
     Dosage: UNK UNK, UNKNOWN
     Route: 065
     Dates: start: 2013
  6. METHYLPHENIDATE [Concomitant]
     Indication: PRODUCT USED FOR UNKNOWN INDICATION
     Dosage: UNK UNK, UNKNOWN
     Route: 065
     Dates: start: 2013

REACTIONS (10)
  - Condition aggravated [Recovered/Resolved]
  - Growth retardation [Recovered/Resolved]
  - Negativism [Recovered/Resolved]
  - Body height increased [Recovered/Resolved]
  - Vision blurred [Recovered/Resolved]
  - Hallucination [Recovered/Resolved]
  - Anger [Recovered/Resolved]
  - Aggression [Recovered/Resolved]
  - Irritability [Recovered/Resolved]
  - Insomnia [Recovered/Resolved]
